FAERS Safety Report 4322380-8 (Version None)
Quarter: 2004Q1

REPORT INFORMATION
  Report Type: 
  Country: None (occurrence: None)
  Receive Date: 20040319
  Receipt Date: 20040312
  Transmission Date: 20041129
  Serious: Yes (Other)
  Sender: FDA-Public Use
  Company Number: GBWYE639012MAR04

PATIENT

DRUGS (1)
  1. EFFEXOR [Suspect]

REACTIONS (2)
  - CONDITION AGGRAVATED [None]
  - PSYCHOTIC DISORDER [None]
